FAERS Safety Report 8282497 (Version 2)
Quarter: 2013Q1

REPORT INFORMATION
  Report Type: Spontaneous
  Country: US (occurrence: US)
  Receive Date: 20111209
  Receipt Date: 20130227
  Transmission Date: 20140127
  Serious: Yes (Other)
  Sender: FDA-Public Use
  Company Number: US-B.I. PHARMACEUTICALS,INC./RIDGEFIELD-2011-BP-27412BP

PATIENT
  Age: 52 Year
  Sex: Male

DRUGS (7)
  1. PRADAXA [Suspect]
     Indication: ATRIAL FIBRILLATION
     Dosage: 150 MG
     Route: 048
  2. PRADAXA [Suspect]
     Dosage: 300 MG
     Route: 048
  3. METOPROLOL [Suspect]
  4. IMMUNOSUPPRESSIVE AGENTS [Concomitant]
  5. CARVEDILOL [Concomitant]
  6. DILTIAZEM [Concomitant]
  7. TACROLIMUS [Concomitant]

REACTIONS (1)
  - Hyperkalaemia [Unknown]
